FAERS Safety Report 15741460 (Version 1)
Quarter: 2018Q4

REPORT INFORMATION
  Report Type: Report from Study
  Country: FR (occurrence: FR)
  Receive Date: 20181219
  Receipt Date: 20181219
  Transmission Date: 20190205
  Serious: Yes (Death, Other)
  Sender: FDA-Public Use
  Company Number: FR-JAZZ-2018-FR-015605

PATIENT

DRUGS (2)
  1. DEFITELIO [Suspect]
     Active Substance: DEFIBROTIDE SODIUM
     Indication: PRODUCT USED FOR UNKNOWN INDICATION
     Dosage: 25 MG/KG, QD
     Dates: start: 20161125, end: 201611
  2. DEFITELIO [Suspect]
     Active Substance: DEFIBROTIDE SODIUM
     Dosage: 26 MG/KG, QD
     Dates: start: 201611, end: 20161130

REACTIONS (8)
  - Viral haemorrhagic cystitis [Unknown]
  - Graft versus host disease [Fatal]
  - Nephropathy [Unknown]
  - Bronchopulmonary aspergillosis [Unknown]
  - Infection [Unknown]
  - Septic shock [Unknown]
  - Atrial tachycardia [Unknown]
  - Gastrointestinal haemorrhage [Unknown]

NARRATIVE: CASE EVENT DATE: 20161130
